FAERS Safety Report 8433143-6 (Version None)
Quarter: 2012Q2

REPORT INFORMATION
  Report Type: 
  Country: None (occurrence: None)
  Receive Date: 20120613
  Receipt Date: 20120607
  Transmission Date: 20120825
  Serious: Yes (Life-Threatening, Hospitalization, Other)
  Sender: FDA-Public Use
  Company Number: TR-ROCHE-1076906

PATIENT
  Sex: Male
  Weight: 76 kg

DRUGS (6)
  1. AVASTIN [Suspect]
     Dates: start: 20100617
  2. ROFERON-A [Suspect]
     Dates: start: 20100617
  3. AVASTIN [Suspect]
     Dosage: NO TREATMENT
     Dates: start: 20100604, end: 20100616
  4. ROFERON-A [Suspect]
     Indication: METASTATIC RENAL CELL CARCINOMA
     Route: 048
     Dates: start: 20091222, end: 20100521
  5. AVASTIN [Suspect]
     Indication: METASTATIC RENAL CELL CARCINOMA
     Route: 042
     Dates: start: 20091222, end: 20100603
  6. ROFERON-A [Suspect]
     Dosage: NO TREATMENT
     Dates: start: 20100521, end: 20100616

REACTIONS (3)
  - HYPERVOLAEMIA [None]
  - BLOOD SODIUM DECREASED [None]
  - MENTAL STATUS CHANGES [None]
